FAERS Safety Report 6240734-X (Version None)
Quarter: 2009Q2

REPORT INFORMATION
  Report Type: 
  Country: None (occurrence: None)
  Receive Date: 20090623
  Receipt Date: 20090304
  Transmission Date: 20091009
  Serious: No
  Sender: FDA-Public Use
  Company Number: US-ASTRAZENECA-2009UW05797

PATIENT
  Sex: Female

DRUGS (5)
  1. PULMICORT RESPULES [Suspect]
     Dosage: 0.5 MG
     Route: 055
     Dates: start: 20080901
  2. DISRETIC [Concomitant]
  3. POTASSIUM CHLORIDE [Concomitant]
  4. SYNTHROID [Concomitant]
  5. PROZAC [Concomitant]

REACTIONS (4)
  - ANXIETY [None]
  - EMOTIONAL DISORDER [None]
  - FEELING HOT [None]
  - PRURITUS [None]
